FAERS Safety Report 9804232 (Version 3)
Quarter: 2014Q2

REPORT INFORMATION
  Report Type: Report from Study
  Country: US (occurrence: US)
  Receive Date: 20140108
  Receipt Date: 20140507
  Transmission Date: 20141212
  Serious: Yes (Life-Threatening, Hospitalization, Other)
  Sender: FDA-Public Use
  Company Number: PHEH2014US000441

PATIENT
  Age: 60 Year
  Sex: Male

DRUGS (2)
  1. EXJADE [Suspect]
     Indication: IRON METABOLISM DISORDER
     Dosage: 1500 MG, ONCE DAILY
     Route: 048
     Dates: start: 201305
  2. EXJADE [Suspect]
     Dosage: 500 MG, DAILY
     Route: 048

REACTIONS (6)
  - Ulcer haemorrhage [Recovering/Resolving]
  - Feeling abnormal [Unknown]
  - Back injury [Unknown]
  - Perforated ulcer [Unknown]
  - Weight decreased [Unknown]
  - Asthenia [Unknown]
